FAERS Safety Report 8511737-7 (Version None)
Quarter: 2012Q3

REPORT INFORMATION
  Report Type: 
  Country: None (occurrence: None)
  Receive Date: 20120716
  Receipt Date: 20120703
  Transmission Date: 20120928
  Serious: Yes (Other)
  Sender: FDA-Public Use
  Company Number: DE-CELGENEUS-062-21880-12063416

PATIENT
  Age: 59 Year
  Sex: Male
  Weight: 103.5 kg

DRUGS (41)
  1. AMITRIPTYLINE HCL [Concomitant]
     Indication: ANTIDEPRESSANT THERAPY
     Dosage: 20 MILLIGRAM
     Route: 065
  2. ENOXAPARIN SODIUM [Concomitant]
     Indication: THROMBOSIS PROPHYLAXIS
     Route: 058
     Dates: start: 20120109
  3. BUSCOPAN [Concomitant]
     Indication: PAIN
     Route: 065
  4. MAGNESIUM SULFATE [Concomitant]
     Route: 065
  5. REVLIMID [Suspect]
     Dosage: 25 MILLIGRAM
     Route: 048
     Dates: start: 20120305, end: 20120305
  6. OMEPRAZOLE [Concomitant]
     Dosage: 40 MILLIGRAM
     Route: 065
     Dates: start: 20080601
  7. TAMSULOSIN HCL [Concomitant]
     Route: 065
  8. KELTICAN FORTE [Concomitant]
     Dosage: 264 MILLIGRAM
     Route: 065
     Dates: start: 20111122, end: 20120106
  9. METOCLOPRAMIDE [Concomitant]
     Indication: NAUSEA
     Route: 065
  10. PYRALVEX [Concomitant]
     Route: 065
  11. LEFAX [Concomitant]
     Route: 065
  12. CELEBREX [Concomitant]
     Dosage: 1 CAPSULE
     Route: 065
  13. LAMISIL SALVE [Concomitant]
     Indication: FUNGAL SKIN INFECTION
     Route: 065
  14. SYNTARIS [Concomitant]
  15. ACETYLCYSTEINE [Concomitant]
     Route: 065
  16. CALCIUM WITH VITAMIN D3 [Concomitant]
     Route: 065
  17. IMODIUM [Concomitant]
     Indication: DIARRHOEA
     Route: 065
     Dates: start: 20120114
  18. REVLIMID [Suspect]
     Dosage: 25 MILLIGRAM
     Route: 048
     Dates: start: 20120206, end: 20120226
  19. ALLOBETA [Concomitant]
     Indication: RENAL DISORDER
     Dosage: 100 MILLIGRAM
     Route: 065
     Dates: start: 20080601
  20. ALBUTEROL SULATE [Concomitant]
  21. PREDNISONE TAB [Concomitant]
     Indication: COLITIS
     Route: 065
     Dates: start: 20070101
  22. KAIMAX [Concomitant]
     Indication: INFECTION PROPHYLAXIS
     Route: 065
  23. SIMVASTATIN [Concomitant]
     Dosage: 20 MILLIGRAM
     Route: 065
  24. REVLIMID [Suspect]
     Dosage: 25 MILLIGRAM
     Route: 048
     Dates: start: 20120402, end: 20120422
  25. REVLIMID [Suspect]
     Dosage: 25 MILLIGRAM
     Route: 048
     Dates: start: 20120430
  26. MESALAMINE [Concomitant]
     Route: 065
     Dates: start: 20070901
  27. VIANI FORTE [Concomitant]
     Indication: BRONCHIAL DISORDER
     Route: 065
  28. SYNTARIS [Concomitant]
     Indication: SINUS DISORDER
     Route: 045
  29. MOVIPREP [Concomitant]
     Indication: LAXATIVE SUPPORTIVE CARE
     Route: 065
  30. PULMICORT [Concomitant]
     Indication: BRONCHIAL DISORDER
     Route: 055
  31. REVLIMID [Suspect]
     Dosage: 25 MILLIGRAM
     Route: 048
     Dates: start: 20120312, end: 20120325
  32. DEXAMETHASONE [Concomitant]
     Dosage: 40 MILLIGRAM
     Route: 065
  33. ALBUTEROL SULATE [Concomitant]
     Route: 065
  34. COTRIM DS [Concomitant]
     Indication: LYMPHOPENIA
     Route: 065
  35. CELEBREX [Concomitant]
     Route: 065
  36. GABAPENTIN [Concomitant]
     Dosage: 200 MILLIGRAM
     Route: 048
  37. REVLIMID [Suspect]
     Indication: PLASMACYTOMA
     Dosage: 25 MILLIGRAM
     Route: 048
     Dates: start: 20120109, end: 20120129
  38. OMEPRAZOLE [Concomitant]
     Dosage: 2 TABLET
     Route: 065
  39. NOVALGIN [Concomitant]
     Indication: PAIN
     Route: 065
  40. LYRICA [Concomitant]
     Route: 065
  41. IMODIUM [Concomitant]
     Route: 065

REACTIONS (45)
  - NAUSEA [None]
  - ABDOMINAL PAIN UPPER [None]
  - POOR QUALITY SLEEP [None]
  - FLATULENCE [None]
  - VERTIGO [None]
  - NASAL DRYNESS [None]
  - MUSCULOSKELETAL STIFFNESS [None]
  - DYSPNOEA [None]
  - DIARRHOEA [None]
  - VOMITING [None]
  - BURN OESOPHAGEAL [None]
  - TREMOR [None]
  - MUCOUS MEMBRANE DISORDER [None]
  - BRONCHIAL SECRETION RETENTION [None]
  - NASAL OBSTRUCTION [None]
  - SNORING [None]
  - NASAL POLYPS [None]
  - INJECTION SITE PAIN [None]
  - MUSCLE SPASMS [None]
  - CHEST PAIN [None]
  - GASTROINTESTINAL MOTILITY DISORDER [None]
  - SUFFOCATION FEELING [None]
  - ASTHENIA [None]
  - PYREXIA [None]
  - CHILLS [None]
  - ABDOMINAL DISCOMFORT [None]
  - DECREASED APPETITE [None]
  - NIGHT SWEATS [None]
  - INSOMNIA [None]
  - FATIGUE [None]
  - CONSTIPATION [None]
  - HYPOAESTHESIA ORAL [None]
  - DRY SKIN [None]
  - INJECTION SITE HAEMATOMA [None]
  - DYSGEUSIA [None]
  - HEADACHE [None]
  - DRY THROAT [None]
  - HYPOAESTHESIA [None]
  - SPINAL PAIN [None]
  - DYSPHAGIA [None]
  - ASTHMA [None]
  - CONVULSION [None]
  - BONE PAIN [None]
  - MUSCLE CONTRACTIONS INVOLUNTARY [None]
  - DRY EYE [None]
